FAERS Safety Report 6771914-2 (Version None)
Quarter: 2010Q2

REPORT INFORMATION
  Report Type: 
  Country: None (occurrence: None)
  Receive Date: 20100616
  Receipt Date: 20100514
  Transmission Date: 20101027
  Serious: No
  Sender: FDA-Public Use
  Company Number: US-JNJFOC-20100506518

PATIENT

DRUGS (1)
  1. INVEGA SUSTENNA [Suspect]
     Indication: DRUG USE FOR UNKNOWN INDICATION
     Dosage: DOSAGE BETWEEN 400 MG AND 450 MG MONTHLY
     Route: 030

REACTIONS (3)
  - AKATHISIA [None]
  - DROOLING [None]
  - DYSKINESIA [None]
